FAERS Safety Report 15692959 (Version 1)
Quarter: 2018Q4

REPORT INFORMATION
  Report Type: Spontaneous
  Country: US (occurrence: US)
  Receive Date: 20181206
  Receipt Date: 20181206
  Transmission Date: 20190205
  Serious: No
  Sender: FDA-Public Use
  Company Number: US-HIKMA PHARMACEUTICALS USA INC.-US-H14001-18-07264

PATIENT
  Age: 83 Year
  Sex: Female
  Weight: 49.89 kg

DRUGS (1)
  1. FLUTICASONE. [Suspect]
     Active Substance: FLUTICASONE
     Indication: DIZZINESS
     Route: 045
     Dates: start: 20180828, end: 20180828

REACTIONS (3)
  - Headache [Not Recovered/Not Resolved]
  - Off label use [Recovered/Resolved]
  - Somnolence [Not Recovered/Not Resolved]

NARRATIVE: CASE EVENT DATE: 201808
